FAERS Safety Report 9880622 (Version 3)
Quarter: 2014Q1

REPORT INFORMATION
  Report Type: Spontaneous
  Country: IT (occurrence: IT)
  Receive Date: 20140207
  Receipt Date: 20140319
  Transmission Date: 20141002
  Serious: Yes (Hospitalization)
  Sender: FDA-Public Use
  Company Number: IT-JNJFOC-20140200744

PATIENT
  Age: 29 Year
  Sex: Female
  Weight: 50 kg

DRUGS (2)
  1. INFLIXIMAB, RECOMBINANT [Suspect]
     Indication: CROHN^S DISEASE
     Route: 042
     Dates: start: 20140129, end: 20140129
  2. INFLIXIMAB, RECOMBINANT [Suspect]
     Indication: CROHN^S DISEASE
     Route: 042
     Dates: start: 20140115

REACTIONS (15)
  - Erythema [Unknown]
  - Throat tightness [Recovered/Resolved]
  - Tachycardia [Unknown]
  - Nausea [Recovered/Resolved]
  - Chest discomfort [Recovered/Resolved]
  - Flushing [Recovered/Resolved]
  - Swollen tongue [Recovered/Resolved]
  - Agitation [Recovered/Resolved]
  - Infusion related reaction [Recovered/Resolved]
  - Abdominal pain [Recovered/Resolved]
  - Hyperhidrosis [Recovered/Resolved]
  - Chest pain [Recovered/Resolved]
  - Oropharyngeal pain [Recovered/Resolved]
  - Laryngeal oedema [Unknown]
  - Hypersensitivity [Unknown]
